FAERS Safety Report 23600696 (Version 1)
Quarter: 2024Q1

REPORT INFORMATION
  Report Type: Spontaneous
  Country: US (occurrence: US)
  Receive Date: 20240306
  Receipt Date: 20240306
  Transmission Date: 20240410
  Serious: Yes (Other)
  Sender: FDA-Public Use
  Company Number: US-PROCTER_AND_GAMBLE-GS24023819

PATIENT
  Age: 67 Year
  Sex: Male

DRUGS (1)
  1. CREST PRO-HEALTH GUM CARE [Suspect]
     Active Substance: CETYLPYRIDINIUM CHLORIDE
     Dosage: HALF A CAPFUL, 3 /WEEK
     Route: 002
     Dates: start: 202310, end: 202402

REACTIONS (1)
  - Gingival cyst [Recovering/Resolving]

NARRATIVE: CASE EVENT DATE: 20231201
